FAERS Safety Report 17773286 (Version 3)
Quarter: 2020Q2

REPORT INFORMATION
  Report Type: Spontaneous
  Country: US (occurrence: US)
  Receive Date: 20200513
  Receipt Date: 20200616
  Transmission Date: 20200714
  Serious: No
  Sender: FDA-Public Use
  Company Number: US-JNJFOC-20200506296

PATIENT
  Sex: Male
  Weight: 59.02 kg

DRUGS (1)
  1. ZYRTEC [Suspect]
     Active Substance: CETIRIZINE HYDROCHLORIDE
     Indication: MULTIPLE ALLERGIES
     Dosage: DATE OF LAST ADMINISTRATION 04/MAY/2020
     Route: 048
     Dates: start: 20200401

REACTIONS (1)
  - Drug ineffective [Unknown]
